FAERS Safety Report 8576009-3 (Version None)
Quarter: 2012Q3

REPORT INFORMATION
  Report Type: 
  Country: None (occurrence: None)
  Receive Date: 20120724
  Receipt Date: 20120711
  Transmission Date: 20120928
  Serious: Yes (Other)
  Sender: FDA-Public Use
  Company Number: 2012P1049951

PATIENT
  Age: 4 Year

DRUGS (2)
  1. LEVETIRACETAM [Suspect]
     Indication: PETIT MAL EPILEPSY
     Dosage: 43 MG/KG;QD;
  2. VALPROATE SODIUM [Concomitant]

REACTIONS (1)
  - PETIT MAL EPILEPSY [None]
